FAERS Safety Report 4614281-2 (Version None)
Quarter: 2005Q1

REPORT INFORMATION
  Report Type: 
  Country: None (occurrence: None)
  Receive Date: 20050315
  Receipt Date: 20050301
  Transmission Date: 20050727
  Serious: Yes (Other)
  Sender: FDA-Public Use
  Company Number: EM2005-0112

PATIENT
  Age: 49 Year
  Sex: Male

DRUGS (10)
  1. PROLEUKIN [Suspect]
     Indication: HIV INFECTION
     Dosage: SEE IMAGE
     Route: 058
     Dates: start: 20001127, end: 20001201
  2. PROLEUKIN [Suspect]
     Indication: HIV INFECTION
     Dosage: SEE IMAGE
     Route: 058
     Dates: start: 20010101
  3. PROLEUKIN [Suspect]
     Indication: HIV INFECTION
     Dosage: SEE IMAGE
     Route: 058
     Dates: start: 20010301
  4. PROLEUKIN [Suspect]
     Indication: HIV INFECTION
     Dosage: SEE IMAGE
     Route: 058
     Dates: start: 20020901
  5. PROLEUKIN [Suspect]
     Indication: HIV INFECTION
     Dosage: SEE IMAGE
     Route: 058
     Dates: start: 20030901
  6. THYROXINE SODIUM (LEVOTHYROXINE SODIUM) [Concomitant]
  7. TENOFOVIR (TENOFOVIR) [Concomitant]
  8. LOPINAVIR [Concomitant]
  9. LAMIVUDINE [Concomitant]
  10. RITONAVIR (RITONAVIR) [Concomitant]

REACTIONS (6)
  - ABNORMAL SENSATION IN EYE [None]
  - BASEDOW'S DISEASE [None]
  - BLOOD THYROID STIMULATING HORMONE DECREASED [None]
  - ENDOCRINE OPHTHALMOPATHY [None]
  - EXOPHTHALMOS [None]
  - IVTH NERVE PARALYSIS [None]
